FAERS Safety Report 6731084-3 (Version None)
Quarter: 2010Q2

REPORT INFORMATION
  Report Type: 
  Country: None (occurrence: None)
  Receive Date: 20100518
  Receipt Date: 20100511
  Transmission Date: 20101027
  Serious: Yes (Other)
  Sender: FDA-Public Use
  Company Number: TW-MYLANLABS-2010S1007993

PATIENT
  Age: 48 Year
  Sex: Female

DRUGS (2)
  1. VENLAFAXINE [Suspect]
     Indication: DEPRESSION
  2. MIRTAZAPINE [Suspect]
     Indication: DEPRESSION

REACTIONS (1)
  - ANGIOEDEMA [None]
